FAERS Safety Report 5028071-2 (Version None)
Quarter: 2006Q2

REPORT INFORMATION
  Report Type: 
  Country: None (occurrence: None)
  Receive Date: 20060613
  Receipt Date: 20060605
  Transmission Date: 20061013
  Serious: Yes (Other)
  Sender: FDA-Public Use
  Company Number: 224729

PATIENT
  Age: 64 Year
  Sex: Female

DRUGS (1)
  1. XOLAIR [Suspect]
     Indication: ASTHMA
     Dates: start: 20060401

REACTIONS (14)
  - BACK PAIN [None]
  - CONTUSION [None]
  - EYE SWELLING [None]
  - INJECTION SITE BRUISING [None]
  - MUSCULOSKELETAL STIFFNESS [None]
  - OEDEMA PERIPHERAL [None]
  - PAIN [None]
  - PAIN IN EXTREMITY [None]
  - PIGMENTATION DISORDER [None]
  - PULMONARY CONGESTION [None]
  - RASH ERYTHEMATOUS [None]
  - SINUS CONGESTION [None]
  - SKIN DISCOLOURATION [None]
  - THROAT IRRITATION [None]
